FAERS Safety Report 19523248 (Version 1)
Quarter: 2021Q3

REPORT INFORMATION
  Report Type: Report from Study
  Country: AU (occurrence: AU)
  Receive Date: 20210712
  Receipt Date: 20210712
  Transmission Date: 20211014
  Serious: Yes (Other)
  Sender: FDA-Public Use
  Company Number: AU-INCYTE CORPORATION-2021IN006073

PATIENT

DRUGS (1)
  1. JAKAVI [Suspect]
     Active Substance: RUXOLITINIB
     Indication: POLYCYTHAEMIA VERA
     Dosage: 2 DF, QD
     Route: 065

REACTIONS (10)
  - Thrombosis [Unknown]
  - Bone pain [Unknown]
  - Disturbance in attention [Unknown]
  - Abdominal discomfort [Unknown]
  - Contusion [Unknown]
  - Fatigue [Unknown]
  - Drug ineffective [Unknown]
  - Myalgia [Unknown]
  - Product dose omission issue [Unknown]
  - Dyspnoea [Unknown]
